FAERS Safety Report 9033049 (Version 1)
Quarter: 2013Q1

REPORT INFORMATION
  Report Type: Spontaneous
  Country: JP (occurrence: None)
  Receive Date: 20130109
  Receipt Date: 20130109
  Transmission Date: 20140127
  Serious: Yes (Other)
  Sender: FDA-Public Use
  Company Number: JP-20120074

PATIENT
  Sex: Female

DRUGS (4)
  1. LIPIODOL ULTRA FLUIDE (ETHIODIZED OIL), UNKNOWN [Suspect]
     Indication: THERAPEUTIC EMBOLISATION
  2. FARMORUBICIN [Suspect]
     Indication: REGIONAL CHEMOTHERAPY
     Route: 013
  3. 5-FU [Suspect]
     Indication: REGIONAL CHEMOTHERAPY
     Route: 013
  4. CYANOACRYLATE [Suspect]
     Route: 013

REACTIONS (2)
  - Peripheral arterial occlusive disease [None]
  - Off label use [None]
